FAERS Safety Report 14984511 (Version 1)
Quarter: 2018Q2

REPORT INFORMATION
  Report Type: Spontaneous
  Country: US (occurrence: US)
  Receive Date: 20180607
  Receipt Date: 20180607
  Transmission Date: 20180711
  Serious: Yes (Other)
  Sender: FDA-Public Use
  Company Number: PHEH2018US022158

PATIENT
  Sex: Female

DRUGS (1)
  1. KISQALI [Suspect]
     Active Substance: RIBOCICLIB
     Indication: BREAST CANCER FEMALE
     Dosage: 600 MG, QD (21 DAYS 1 CYCLE)
     Route: 048
     Dates: start: 201804

REACTIONS (2)
  - White blood cell count decreased [Recovering/Resolving]
  - Nausea [Recovering/Resolving]
